FAERS Safety Report 25116692 (Version 1)
Quarter: 2025Q1

REPORT INFORMATION
  Report Type: Other
  Country: ES (occurrence: ES)
  Receive Date: 20250325
  Receipt Date: 20250325
  Transmission Date: 20250409
  Serious: Yes (Hospitalization)
  Sender: STRIDES
  Company Number: None

PATIENT
  Age: 74 Year
  Sex: Male

DRUGS (2)
  1. COLCHICINE [Interacting]
     Active Substance: COLCHICINE
     Indication: Arthritis
     Route: 048
     Dates: start: 20241125, end: 20241207
  2. PREDNISOLONE [Interacting]
     Active Substance: PREDNISOLONE
     Indication: Arthritis
     Route: 048
     Dates: start: 20241127, end: 20241207

REACTIONS (1)
  - Upper gastrointestinal haemorrhage [Recovered/Resolved]

NARRATIVE: CASE EVENT DATE: 20241207
